FAERS Safety Report 6882040-6 (Version None)
Quarter: 2010Q2

REPORT INFORMATION
  Report Type: 
  Country: None (occurrence: None)
  Receive Date: 20100630
  Receipt Date: 20090225
  Transmission Date: 20101027
  Serious: No
  Sender: FDA-Public Use
  Company Number: 2009-01052

PATIENT
  Age: 25 Year
  Sex: Female
  Weight: 54.8852 kg

DRUGS (1)
  1. ZICAM EXTREME CONGESTION RELIEF [Suspect]
     Dosage: QD X 3 DAYS
     Dates: start: 20090222, end: 20090225

REACTIONS (1)
  - ANOSMIA [None]
